FAERS Safety Report 12261594 (Version 3)
Quarter: 2016Q2

REPORT INFORMATION
  Report Type: Report from Study
  Country: CA (occurrence: CA)
  Receive Date: 20160413
  Receipt Date: 20160622
  Transmission Date: 20160815
  Serious: Yes (Hospitalization, Other)
  Sender: FDA-Public Use
  Company Number: CA-ROCHE-1280556

PATIENT
  Age: 69 Year
  Sex: Female
  Weight: 75 kg

DRUGS (22)
  1. TYLENOL #4 [Concomitant]
  2. VENLAFAXINE [Concomitant]
     Active Substance: VENLAFAXINE HYDROCHLORIDE
     Indication: DEPRESSION
  3. ACTEMRA [Suspect]
     Active Substance: TOCILIZUMAB
     Route: 042
     Dates: start: 20140120
  4. ACTEMRA [Suspect]
     Active Substance: TOCILIZUMAB
     Route: 042
     Dates: start: 20150424, end: 20150424
  5. ACTEMRA [Suspect]
     Active Substance: TOCILIZUMAB
     Route: 042
     Dates: start: 20120306
  6. ACTEMRA [Suspect]
     Active Substance: TOCILIZUMAB
     Route: 042
     Dates: start: 20130920
  7. ACTEMRA [Suspect]
     Active Substance: TOCILIZUMAB
     Route: 042
     Dates: start: 20131213
  8. GRAVOL [Concomitant]
     Active Substance: DIMENHYDRINATE
  9. ACTEMRA [Suspect]
     Active Substance: TOCILIZUMAB
     Route: 042
     Dates: start: 20160411
  10. CODEINE [Concomitant]
     Active Substance: CODEINE
  11. ACTEMRA [Suspect]
     Active Substance: TOCILIZUMAB
     Indication: RHEUMATOID ARTHRITIS
     Route: 042
     Dates: start: 20111017
  12. ACTEMRA [Suspect]
     Active Substance: TOCILIZUMAB
     Route: 042
     Dates: start: 20160311
  13. M-ESLON [Concomitant]
     Active Substance: MORPHINE SULFATE
     Indication: PAIN
  14. ADVAIR HFA [Concomitant]
     Active Substance: FLUTICASONE PROPIONATE\SALMETEROL XINAFOATE
  15. ACTEMRA [Suspect]
     Active Substance: TOCILIZUMAB
     Route: 042
     Dates: start: 20150108
  16. ZOPICLONE [Concomitant]
     Active Substance: ZOPICLONE
     Indication: INSOMNIA
  17. ACTEMRA [Suspect]
     Active Substance: TOCILIZUMAB
     Route: 042
     Dates: start: 20151005
  18. METHOTREXATE [Concomitant]
     Active Substance: METHOTREXATE
  19. SPIRIVA [Concomitant]
     Active Substance: TIOTROPIUM BROMIDE MONOHYDRATE
  20. ACTEMRA [Suspect]
     Active Substance: TOCILIZUMAB
     Route: 042
     Dates: start: 20140826
  21. ACTEMRA [Suspect]
     Active Substance: TOCILIZUMAB
     Route: 042
     Dates: start: 20150206
  22. TRAZODONE [Concomitant]
     Active Substance: TRAZODONE HYDROCHLORIDE

REACTIONS (19)
  - Upper respiratory tract infection [Unknown]
  - Infusion related reaction [Unknown]
  - Osteopenia [Unknown]
  - Pneumonia [Not Recovered/Not Resolved]
  - Arthralgia [Unknown]
  - Oxygen saturation decreased [Unknown]
  - Blood pressure diastolic decreased [Unknown]
  - Pulmonary mass [Recovered/Resolved]
  - Gastroenteritis [Unknown]
  - Vascular fragility [Unknown]
  - Fall [Unknown]
  - Drug effect decreased [Unknown]
  - Heart rate increased [Unknown]
  - Weight increased [Unknown]
  - Injection site extravasation [Unknown]
  - Heart rate increased [Unknown]
  - Influenza [Unknown]
  - Hypotension [Unknown]
  - Haematoma [Unknown]

NARRATIVE: CASE EVENT DATE: 2013
